FAERS Safety Report 10048757 (Version 1)
Quarter: 2014Q1

REPORT INFORMATION
  Report Type: Report from Study
  Country: US (occurrence: US)
  Receive Date: 20140331
  Receipt Date: 20140331
  Transmission Date: 20141002
  Serious: Yes (Hospitalization, Other)
  Sender: FDA-Public Use
  Company Number: US-VERTEX PHARMACEUTICALS INC-2014-001438

PATIENT
  Age: 21 Year
  Sex: Male

DRUGS (1)
  1. VX-770 [Suspect]
     Indication: CYSTIC FIBROSIS
     Dosage: 150 UNK, BID
     Dates: start: 20130118

REACTIONS (3)
  - Nasal septum deviation [Unknown]
  - Bronchitis [Unknown]
  - Infective pulmonary exacerbation of cystic fibrosis [Recovering/Resolving]
